FAERS Safety Report 5995137-X (Version None)
Quarter: 2008Q4

REPORT INFORMATION
  Report Type: 
  Country: None (occurrence: None)
  Receive Date: 20081212
  Receipt Date: 20081204
  Transmission Date: 20090506
  Serious: Yes (Other)
  Sender: FDA-Public Use
  Company Number: PHHY2008BR30932

PATIENT
  Age: 65 Year
  Sex: Male

DRUGS (1)
  1. FORASEQ [Suspect]
     Dosage: 12/400 UG

REACTIONS (11)
  - APATHY [None]
  - COUGH [None]
  - DYSGEUSIA [None]
  - DYSPHAGIA [None]
  - MUSCLE SPASMS [None]
  - MYALGIA [None]
  - NERVOUSNESS [None]
  - POOR PERIPHERAL CIRCULATION [None]
  - SWELLING [None]
  - WEIGHT INCREASED [None]
  - WHEEZING [None]
